FAERS Safety Report 11107448 (Version 2)
Quarter: 2015Q2

REPORT INFORMATION
  Report Type: Spontaneous
  Country: FR (occurrence: FR)
  Receive Date: 20150512
  Receipt Date: 20150522
  Transmission Date: 20150821
  Serious: Yes (Hospitalization, Other)
  Sender: FDA-Public Use
  Company Number: FR-PFIZER INC-2015152986

PATIENT
  Age: 14 Year
  Sex: Female
  Weight: 60 kg

DRUGS (4)
  1. LAMALINE /00764901/ [Suspect]
     Active Substance: ACETAMINOPHEN\BELLADONNA LEAF\CAFFEINE\OPIUM TINCTURE
     Dosage: UNK, SINGLE
     Route: 048
     Dates: start: 20150311, end: 20150311
  2. LYRICA [Suspect]
     Active Substance: PREGABALIN
     Dosage: UNK, SINGLE
     Route: 048
     Dates: start: 20150311, end: 20150311
  3. LEXOMIL ROCHE [Suspect]
     Active Substance: BROMAZEPAM
     Dosage: UNK, SINGLE
     Route: 048
     Dates: start: 20150311, end: 20150311
  4. IXPRIM [Suspect]
     Active Substance: ACETAMINOPHEN\TRAMADOL HYDROCHLORIDE
     Dosage: UNK, SINGLE
     Route: 048
     Dates: start: 20150311, end: 20150311

REACTIONS (9)
  - Intentional overdose [Recovered/Resolved]
  - Suicide attempt [Recovered/Resolved]
  - Miosis [Recovered/Resolved]
  - Bronchospasm [Recovered/Resolved]
  - Toxicity to various agents [Recovered/Resolved]
  - Coma scale abnormal [Recovered/Resolved]
  - Pneumonia aspiration [Recovered/Resolved]
  - Bradypnoea [Recovered/Resolved]
  - Hepatocellular injury [Recovering/Resolving]

NARRATIVE: CASE EVENT DATE: 20150311
